FAERS Safety Report 23136934 (Version 1)
Quarter: 2023Q4

REPORT INFORMATION
  Report Type: Spontaneous
  Country: US (occurrence: US)
  Receive Date: 20231102
  Receipt Date: 20231102
  Transmission Date: 20240110
  Serious: No
  Sender: FDA-Public Use
  Company Number: US-ABBVIE-5473532

PATIENT
  Sex: Female

DRUGS (5)
  1. BOTOX [Suspect]
     Active Substance: ONABOTULINUMTOXINA
     Indication: Musculoskeletal stiffness
     Dosage: TIME INTERVAL: AS NECESSARY
     Route: 065
  2. BOTOX [Suspect]
     Active Substance: ONABOTULINUMTOXINA
     Indication: Musculoskeletal stiffness
     Dosage: TIME INTERVAL: AS NECESSARY
     Route: 065
  3. BOTOX [Suspect]
     Active Substance: ONABOTULINUMTOXINA
     Indication: Musculoskeletal stiffness
     Dosage: TIME INTERVAL: AS NECESSARY: DOSE INCREASED
     Route: 065
  4. BOTOX [Suspect]
     Active Substance: ONABOTULINUMTOXINA
     Indication: Musculoskeletal stiffness
     Dosage: TIME INTERVAL: AS NECESSARY
     Route: 065
  5. OCREVUS [Concomitant]
     Active Substance: OCRELIZUMAB
     Indication: Product used for unknown indication

REACTIONS (8)
  - Off label use [Unknown]
  - Dyspnoea [Recovered/Resolved]
  - Drug hypersensitivity [Unknown]
  - Gait disturbance [Recovered/Resolved]
  - Mobility decreased [Recovered/Resolved]
  - Musculoskeletal stiffness [Recovered/Resolved]
  - Drug ineffective for unapproved indication [Unknown]
  - Dysphagia [Recovered/Resolved]
